FAERS Safety Report 11713525 (Version 1)
Quarter: 2015Q4

REPORT INFORMATION
  Report Type: Spontaneous
  Country: US (occurrence: US)
  Receive Date: 20151109
  Receipt Date: 20151109
  Transmission Date: 20160304
  Serious: No
  Sender: FDA-Public Use
  Company Number: US-ASTRAZENECA-2015SF05574

PATIENT
  Sex: Male

DRUGS (5)
  1. MORPHINE SULPHATE [Concomitant]
     Active Substance: MORPHINE SULFATE
     Dosage: DAILY
  2. OXYCODONE [Concomitant]
     Active Substance: OXYCODONE
     Dosage: 4 OR 5-15 MG A DAY
  3. MIRALAX [Concomitant]
     Active Substance: POLYETHYLENE GLYCOL 3350
  4. MOVANTIK [Suspect]
     Active Substance: NALOXEGOL OXALATE
     Route: 048
  5. STOOL SOFTENERS [Concomitant]
     Active Substance: UNSPECIFIED INGREDIENT

REACTIONS (8)
  - Neck injury [Unknown]
  - Adverse event [Unknown]
  - General physical health deterioration [Unknown]
  - Reading disorder [Unknown]
  - Eating disorder [Unknown]
  - Muscle twitching [Unknown]
  - Pain [Unknown]
  - Drug ineffective [Unknown]
